FAERS Safety Report 6961229-1 (Version None)
Quarter: 2010Q3

REPORT INFORMATION
  Report Type: 
  Country: None (occurrence: None)
  Receive Date: 20100901
  Receipt Date: 20100519
  Transmission Date: 20110219
  Serious: Yes (Hospitalization)
  Sender: FDA-Public Use
  Company Number: PHHY2010BR32420

PATIENT
  Age: 20 Year
  Sex: Male

DRUGS (4)
  1. CARBAMAZEPINE [Suspect]
     Indication: IMPULSIVE BEHAVIOUR
     Dosage: 800 MG PER DAY
  2. HALOPERIDOL [Suspect]
     Indication: IMPULSIVE BEHAVIOUR
     Dosage: 10 MG PER DAY
  3. LORAZEPAM [Suspect]
     Indication: IMPULSIVE BEHAVIOUR
     Dosage: 2 MG AT NIGHT
  4. PIMOZIDE [Suspect]
     Dosage: 4 MG, TID

REACTIONS (14)
  - ARRHYTHMIA [None]
  - ATRIOVENTRICULAR BLOCK [None]
  - CARDIAC FAILURE [None]
  - CARDIAC INDEX INCREASED [None]
  - CARDIAC PACEMAKER INSERTION [None]
  - CARDIOMYOPATHY ALCOHOLIC [None]
  - CONDUCTION DISORDER [None]
  - CONGESTIVE CARDIOMYOPATHY [None]
  - DRUG INEFFECTIVE [None]
  - EJECTION FRACTION DECREASED [None]
  - ELECTROCARDIOGRAM QRS COMPLEX ABNORMAL [None]
  - ELECTROCARDIOGRAM QT PROLONGED [None]
  - HEART RATE DECREASED [None]
  - SYNCOPE [None]
